FAERS Safety Report 7869361-5 (Version None)
Quarter: 2011Q4

REPORT INFORMATION
  Report Type: 
  Country: None (occurrence: None)
  Receive Date: 20111028
  Receipt Date: 20101230
  Transmission Date: 20120403
  Serious: No
  Sender: FDA-Public Use
  Company Number: US-AMGEN-USASP2010012438

PATIENT
  Age: 41 Year
  Sex: Female

DRUGS (1)
  1. ENBREL [Suspect]
     Indication: PSORIASIS
     Dates: start: 20101203

REACTIONS (5)
  - HEADACHE [None]
  - NAUSEA [None]
  - BLOOD GLUCOSE INCREASED [None]
  - MALAISE [None]
  - FEELING OF BODY TEMPERATURE CHANGE [None]
